FAERS Safety Report 23764243 (Version 1)
Quarter: 2024Q2

REPORT INFORMATION
  Report Type: Spontaneous
  Country: US (occurrence: US)
  Receive Date: 20240420
  Receipt Date: 20240420
  Transmission Date: 20240716
  Serious: No
  Sender: FDA-Public Use
  Company Number: US-ABBVIE-5715893

PATIENT
  Sex: Female
  Weight: 67 kg

DRUGS (4)
  1. VRAYLAR [Suspect]
     Active Substance: CARIPRAZINE
     Indication: Antipsychotic therapy
     Dosage: FORM STRENGTH-1.5 MILLIGRAM
     Route: 048
     Dates: start: 202403
  2. LUMRYZ [Suspect]
     Active Substance: SODIUM OXYBATE
     Indication: Hypersomnia
     Dosage: 4.5 GRAM, ONCE NIGHTLY
     Route: 065
     Dates: start: 20240312, end: 20240318
  3. LUMRYZ [Suspect]
     Active Substance: SODIUM OXYBATE
     Indication: Hypersomnia
     Dosage: 6 GRAM, ONCE NIGHTLY
     Route: 048
     Dates: start: 20240319, end: 20240319
  4. REGLAN [Suspect]
     Active Substance: METOCLOPRAMIDE HYDROCHLORIDE
     Indication: Nausea
     Route: 065
     Dates: start: 20240315, end: 20240317

REACTIONS (24)
  - Migraine [Unknown]
  - Dysgeusia [Unknown]
  - Therapeutic response unexpected [Unknown]
  - Heart rate irregular [Unknown]
  - Muscle rigidity [Unknown]
  - Chest pain [Not Recovered/Not Resolved]
  - Slow speech [Unknown]
  - Myalgia [Unknown]
  - Insomnia [Unknown]
  - Drug interaction [Unknown]
  - Headache [Not Recovered/Not Resolved]
  - Dysarthria [Unknown]
  - Diarrhoea [Not Recovered/Not Resolved]
  - Hyperhidrosis [Not Recovered/Not Resolved]
  - Nausea [Not Recovered/Not Resolved]
  - Dyspnoea [Unknown]
  - Unevaluable event [Unknown]
  - Vomiting [Not Recovered/Not Resolved]
  - Fatigue [Not Recovered/Not Resolved]
  - Palpitations [Unknown]
  - Stiff person syndrome [Not Recovered/Not Resolved]
  - Urinary incontinence [Unknown]
  - Off label use [Unknown]
  - Cognitive disorder [Unknown]

NARRATIVE: CASE EVENT DATE: 20240101
